FAERS Safety Report 24141829 (Version 1)
Quarter: 2024Q3

REPORT INFORMATION
  Report Type: Spontaneous
  Country: NL (occurrence: NL)
  Receive Date: 20240726
  Receipt Date: 20240726
  Transmission Date: 20241016
  Serious: Yes (Other)
  Sender: TEVA
  Company Number: None

PATIENT
  Age: 67 Year
  Sex: Female
  Weight: 98 kg

DRUGS (1)
  1. DICLOFENAC [Suspect]
     Active Substance: DICLOFENAC
     Indication: Arthralgia
     Dosage: 1 X 50 MGR AND 1 X 12.5 MGR;  DICLOFENAC POTASSIUM /BRAND NAME NOT SPECIFIED
     Route: 065
     Dates: end: 20240513

REACTIONS (2)
  - Arrhythmia [Recovered/Resolved]
  - Insomnia [Recovered/Resolved]
